FAERS Safety Report 4563811-8 (Version None)
Quarter: 2005Q1

REPORT INFORMATION
  Report Type: 
  Country: None (occurrence: None)
  Receive Date: 20050125
  Receipt Date: 20050114
  Transmission Date: 20050727
  Serious: Yes (Hospitalization)
  Sender: FDA-Public Use
  Company Number: 2005014504

PATIENT
  Age: 67 Year
  Sex: Female

DRUGS (4)
  1. SPIRONOLACTONE [Suspect]
     Indication: HYPOKALAEMIA
     Dosage: ORAL
     Route: 048
  2. ASPIRIN [Concomitant]
  3. HEPARIN [Concomitant]
  4. BETA BLOCKING AGENTS (BETA BLOCKING AGENTS) [Concomitant]

REACTIONS (11)
  - ADRENAL ADENOMA [None]
  - ATRIAL FIBRILLATION [None]
  - CEREBRAL ARTERY EMBOLISM [None]
  - ELECTROCARDIOGRAM ST SEGMENT DEPRESSION [None]
  - HYPOKALAEMIA [None]
  - ISCHAEMIC STROKE [None]
  - LEUKOENCEPHALOPATHY [None]
  - METABOLIC ALKALOSIS [None]
  - PRIMARY HYPERALDOSTERONISM [None]
  - RENIN DECREASED [None]
  - VENTRICULAR HYPERTROPHY [None]
